FAERS Safety Report 20236232 (Version 1)
Quarter: 2021Q4

REPORT INFORMATION
  Report Type: Spontaneous
  Country: US (occurrence: US)
  Receive Date: 20211228
  Receipt Date: 20211228
  Transmission Date: 20220303
  Serious: No
  Sender: FDA-Public Use
  Company Number: US-CELLTRION INC.-2021US013680

PATIENT

DRUGS (2)
  1. TRUXIMA [Suspect]
     Active Substance: RITUXIMAB-ABBS
     Indication: Immune thrombocytopenia
     Dosage: UNKNOWN
     Dates: start: 201904, end: 20201015
  2. COVID-19 VACCINE [Concomitant]
     Dosage: UNK
     Dates: end: 20211012

REACTIONS (2)
  - Antibody test negative [Unknown]
  - Off label use [Unknown]

NARRATIVE: CASE EVENT DATE: 20190401
